FAERS Safety Report 7828513-0 (Version None)
Quarter: 2011Q4

REPORT INFORMATION
  Report Type: 
  Country: None (occurrence: None)
  Receive Date: 20111020
  Receipt Date: 20111020
  Transmission Date: 20120403
  Serious: Yes (Life-Threatening, Hospitalization, Other)
  Sender: FDA-Public Use
  Company Number: None

PATIENT
  Age: 50 Year
  Sex: Female
  Weight: 81.193 kg

DRUGS (1)
  1. COMBIPATCH [Suspect]
     Indication: MENOPAUSE
     Dosage: 1 PATCH
     Route: 062
     Dates: start: 20101126, end: 20110514

REACTIONS (1)
  - CEREBROVASCULAR ACCIDENT [None]
